FAERS Safety Report 6334158-4 (Version None)
Quarter: 2009Q3

REPORT INFORMATION
  Report Type: 
  Country: None (occurrence: None)
  Receive Date: 20090829
  Receipt Date: 20090718
  Transmission Date: 20100115
  Serious: No
  Sender: FDA-Public Use
  Company Number: US-ABBOTT-09P-163-0586763-00

PATIENT
  Sex: Female
  Weight: 45.4 kg

DRUGS (1)
  1. SIMCOR [Suspect]
     Indication: DRUG USE FOR UNKNOWN INDICATION
     Dosage: 1000/20 MG DAILY AT BEDTIME
     Route: 048
     Dates: start: 20090714, end: 20090714

REACTIONS (2)
  - NAUSEA [None]
  - VOMITING [None]
